FAERS Safety Report 8775968 (Version 1)
Quarter: 2012Q4

REPORT INFORMATION
  Report Type: 
  Country: US (occurrence: US)
  Receive Date: 20120910
  Receipt Date: 20120910
  Transmission Date: 20130627
  Serious: Yes (Death)
  Sender: FDA-Public Use
  Company Number: US-ASTRAZENECA-2012SE70261

PATIENT
  Age: 18 Month
  Sex: Female

DRUGS (4)
  1. SYNAGIS [Suspect]
     Indication: TRUNCUS ARTERIOSUS PERSISTENT
     Dosage: 15 mg/kg once in a month
     Route: 030
     Dates: start: 20111020, end: 20111220
  2. SYNAGIS [Suspect]
     Indication: CHOANAL ATRESIA
     Dosage: 15 mg/kg once in a month
     Route: 030
     Dates: start: 20111020, end: 20111220
  3. MIRALAX [Concomitant]
  4. PRILOSEC [Concomitant]

REACTIONS (1)
  - Death [Fatal]
